FAERS Safety Report 4919809-0 (Version None)
Quarter: 2006Q1

REPORT INFORMATION
  Report Type: 
  Country: None (occurrence: None)
  Receive Date: 20060217
  Receipt Date: 20060116
  Transmission Date: 20060701
  Serious: Yes (Hospitalization)
  Sender: FDA-Public Use
  Company Number: 222109

PATIENT
  Age: 62 Year
  Sex: Male
  Weight: 98 kg

DRUGS (6)
  1. AVASTIN [Suspect]
     Indication: COLORECTAL CANCER METASTATIC
     Dosage: 465 MG, INTRAVENOUS
     Route: 042
     Dates: start: 20050217
  2. IRINOTECAN HCL [Suspect]
     Indication: COLORECTAL CANCER METASTATIC
     Dosage: 340 MG, INTRAVENOUS
     Route: 042
     Dates: start: 20050217
  3. FLUOROURACIL [Suspect]
     Indication: COLORECTAL CANCER METASTATIC
     Dosage: 875 MG, INTRAVENOUS
     Route: 042
     Dates: start: 20050217
  4. LIPITOR [Concomitant]
  5. INSULIN [Concomitant]
  6. COAPROVEL (HYDROCHLOROTHIAZIDE, IRBESARTAN) [Concomitant]

REACTIONS (3)
  - C-REACTIVE PROTEIN INCREASED [None]
  - GRANULOCYTE COUNT DECREASED [None]
  - NEUTROPENIA [None]
